FAERS Safety Report 4943873-6 (Version None)
Quarter: 2006Q1

REPORT INFORMATION
  Report Type: 
  Country: None (occurrence: None)
  Receive Date: 20060310
  Receipt Date: 20060306
  Transmission Date: 20060701
  Serious: Yes (Life-Threatening, Hospitalization)
  Sender: FDA-Public Use
  Company Number: GBWYE374908FEB06

PATIENT
  Age: 55 Year
  Sex: Male

DRUGS (2)
  1. EFFEXOR XR [Suspect]
     Dosage: OVERDOSE OF 50 TABLETS
     Route: 048
     Dates: start: 20060101, end: 20060101
  2. ALCOHOL (ETHANOL) [Suspect]
     Dates: start: 20060101, end: 20060101

REACTIONS (3)
  - INTENTIONAL OVERDOSE [None]
  - NEUROLEPTIC MALIGNANT SYNDROME [None]
  - RHABDOMYOLYSIS [None]
